FAERS Safety Report 9733868 (Version 2)
Quarter: 2013Q4

REPORT INFORMATION
  Report Type: Spontaneous
  Country: US (occurrence: US)
  Receive Date: 20131205
  Receipt Date: 20131205
  Transmission Date: 20140711
  Serious: Yes (Death, Hospitalization)
  Sender: FDA-Public Use
  Company Number: US-CELGENEUS-163-20785-13013253

PATIENT
  Age: 76 Year
  Sex: Male
  Weight: 76.27 kg

DRUGS (34)
  1. THALOMID [Suspect]
     Indication: PLASMA CELL MYELOMA
     Dosage: 14.2857 MILLIGRAM
     Route: 048
     Dates: start: 20120830, end: 20121203
  2. THALOMID [Suspect]
     Dosage: 100 MILLIGRAM
     Route: 048
     Dates: start: 20130110, end: 201302
  3. REVLIMID [Suspect]
     Indication: PLASMA CELL MYELOMA
     Dosage: 10 MILLIGRAM
     Route: 048
     Dates: start: 20130117, end: 2013
  4. VELCADE [Concomitant]
     Indication: PLASMA CELL MYELOMA
     Route: 065
     Dates: start: 20120927
  5. DEXAMETHASONE [Concomitant]
     Indication: PLASMA CELL MYELOMA
     Route: 065
     Dates: start: 20120927
  6. AUGMENTIN [Concomitant]
     Indication: UPPER RESPIRATORY TRACT INFECTION
     Route: 065
     Dates: start: 20130111, end: 20130121
  7. IBUPROFEN [Concomitant]
     Indication: PAIN
     Route: 065
     Dates: start: 20120827
  8. AMBIEN [Concomitant]
     Indication: PRODUCT USED FOR UNKNOWN INDICATION
     Route: 065
  9. ASA [Concomitant]
     Indication: PRODUCT USED FOR UNKNOWN INDICATION
     Route: 065
  10. BETIMOL [Concomitant]
     Indication: PRODUCT USED FOR UNKNOWN INDICATION
     Route: 065
  11. CITRACAL [Concomitant]
     Indication: PRODUCT USED FOR UNKNOWN INDICATION
     Route: 065
  12. CLOTRIMAZOLE [Concomitant]
     Indication: PRODUCT USED FOR UNKNOWN INDICATION
     Route: 065
  13. EES [Concomitant]
     Indication: PRODUCT USED FOR UNKNOWN INDICATION
     Route: 047
  14. FERROUS SULFATE [Concomitant]
     Indication: PRODUCT USED FOR UNKNOWN INDICATION
     Route: 065
  15. FLONASE [Concomitant]
     Indication: PRODUCT USED FOR UNKNOWN INDICATION
     Route: 065
  16. GLUCOSAMINE [Concomitant]
     Indication: PRODUCT USED FOR UNKNOWN INDICATION
     Route: 065
  17. LORAZEPAM [Concomitant]
     Indication: PRODUCT USED FOR UNKNOWN INDICATION
     Route: 065
  18. MIRALAX [Concomitant]
     Indication: PRODUCT USED FOR UNKNOWN INDICATION
     Route: 065
  19. OCCUFLEX [Concomitant]
     Indication: PRODUCT USED FOR UNKNOWN INDICATION
     Route: 065
  20. PREVACID [Concomitant]
     Indication: PRODUCT USED FOR UNKNOWN INDICATION
     Route: 065
  21. SENNA [Concomitant]
     Indication: PRODUCT USED FOR UNKNOWN INDICATION
     Route: 065
  22. SIMVASTATIN [Concomitant]
     Indication: PRODUCT USED FOR UNKNOWN INDICATION
     Route: 065
  23. VALACYCLOVIR [Concomitant]
     Indication: PRODUCT USED FOR UNKNOWN INDICATION
     Route: 065
  24. VITAMIN D3 [Concomitant]
     Indication: PRODUCT USED FOR UNKNOWN INDICATION
     Route: 065
  25. ANUSOL [Concomitant]
     Indication: PRODUCT USED FOR UNKNOWN INDICATION
     Route: 065
     Dates: start: 20120411
  26. FENTANYL [Concomitant]
     Indication: PAIN
     Route: 062
     Dates: start: 20120726
  27. LEXAPRO [Concomitant]
     Indication: DEPRESSION
     Route: 065
     Dates: start: 20120822
  28. LOMOTIL [Concomitant]
     Indication: DIARRHOEA
     Route: 065
     Dates: start: 20120927
  29. NEUPOGEN [Concomitant]
     Indication: NEUTROPENIA
     Route: 065
     Dates: start: 20121228
  30. ONDANSETRON [Concomitant]
     Indication: NAUSEA
     Route: 065
     Dates: start: 20120820
  31. ONDANSETRON [Concomitant]
     Indication: VOMITING
  32. OXYCODONE [Concomitant]
     Indication: PAIN
     Route: 065
     Dates: start: 20120717
  33. PROCHLORPERAZINE [Concomitant]
     Indication: NAUSEA
     Route: 065
     Dates: start: 20120818
  34. PROCHLORPERAZINE [Concomitant]
     Indication: VOMITING

REACTIONS (2)
  - Renal failure [Fatal]
  - No therapeutic response [Not Recovered/Not Resolved]
